FAERS Safety Report 16322830 (Version 1)
Quarter: 2019Q2

REPORT INFORMATION
  Report Type: Report from Study
  Country: None (occurrence: US)
  Receive Date: 20190516
  Receipt Date: 20190516
  Transmission Date: 20190711
  Serious: Yes (Other)
  Sender: FDA-Public Use
  Company Number: US-ABBVIE-19K-163-2780212-00

PATIENT
  Age: 68 Year
  Sex: Male

DRUGS (1)
  1. VENCLEXTA [Suspect]
     Active Substance: VENETOCLAX
     Indication: CHRONIC LYMPHOCYTIC LEUKAEMIA
     Route: 048
     Dates: start: 20180410, end: 201904

REACTIONS (6)
  - Neoplasm malignant [Unknown]
  - Feeling abnormal [Unknown]
  - Malignant splenic neoplasm [Unknown]
  - Therapeutic product effect decreased [Not Recovered/Not Resolved]
  - Blood pressure increased [Recovered/Resolved]
  - Diarrhoea [Unknown]

NARRATIVE: CASE EVENT DATE: 201904
